FAERS Safety Report 15011376 (Version 1)
Quarter: 2018Q2

REPORT INFORMATION
  Report Type: Spontaneous
  Country: US (occurrence: US)
  Receive Date: 20180529
  Receipt Date: 20180529
  Transmission Date: 20180711
  Serious: Yes (Disabling)
  Sender: FDA-Public Use
  Company Number: None

PATIENT
  Age: 69 Year
  Sex: Male
  Weight: 58.5 kg

DRUGS (4)
  1. DUPIXENT [Suspect]
     Active Substance: DUPILUMAB
     Indication: DERMATITIS ATOPIC
     Dosage: ?          QUANTITY:2 SYRINGES;OTHER FREQUENCY:EVERY 2 WEEKS;?
     Route: 058
     Dates: start: 20180130, end: 20180213
  2. BUPROPION. [Concomitant]
     Active Substance: BUPROPION
  3. QUETIAPINE FUMARATE. [Concomitant]
     Active Substance: QUETIAPINE FUMARATE
  4. LISINIPRIL [Concomitant]
     Active Substance: LISINOPRIL

REACTIONS (4)
  - Weight decreased [None]
  - Dermatitis atopic [None]
  - Lymphadenopathy [None]
  - Fatigue [None]

NARRATIVE: CASE EVENT DATE: 20180213
